FAERS Safety Report 5759631-9 (Version None)
Quarter: 2008Q2

REPORT INFORMATION
  Report Type: 
  Country: None (occurrence: None)
  Receive Date: 20080605
  Receipt Date: 20080526
  Transmission Date: 20081010
  Serious: Yes (Other)
  Sender: FDA-Public Use
  Company Number: NO-AMGEN-US282184

PATIENT
  Age: 33 Year
  Sex: Male

DRUGS (3)
  1. ENBREL [Suspect]
     Indication: ANKYLOSING SPONDYLITIS
     Route: 065
  2. REMICADE [Suspect]
     Indication: ANKYLOSING SPONDYLITIS
     Route: 042
     Dates: start: 20030303
  3. METHOTREXATE [Concomitant]
     Route: 065
     Dates: start: 20030101, end: 20061025

REACTIONS (5)
  - ANKYLOSING SPONDYLITIS [None]
  - BLADDER DILATATION [None]
  - CONDITION AGGRAVATED [None]
  - DYSURIA [None]
  - IRIDOCYCLITIS [None]
